FAERS Safety Report 20372582 (Version 1)
Quarter: 2022Q1

REPORT INFORMATION
  Report Type: Spontaneous
  Country: CA (occurrence: CA)
  Receive Date: 20220125
  Receipt Date: 20220125
  Transmission Date: 20220424
  Serious: Yes (Other)
  Sender: FDA-Public Use
  Company Number: CA-MLMSERVICE-20220111-3310853-1

PATIENT
  Sex: Female

DRUGS (4)
  1. DULOXETINE [Interacting]
     Active Substance: DULOXETINE
     Indication: Migraine prophylaxis
     Dosage: 30 MILLIGRAM, ONCE A DAY
     Route: 065
     Dates: start: 201708, end: 201711
  2. DULOXETINE [Interacting]
     Active Substance: DULOXETINE
     Indication: Depression
  3. DULOXETINE [Interacting]
     Active Substance: DULOXETINE
     Indication: Anxiety
  4. SUMATRIPTAN [Interacting]
     Active Substance: SUMATRIPTAN
     Indication: Migraine
     Dosage: 100 MILLIGRAM (AS NEEDED, DAILY)
     Route: 048
     Dates: start: 201701

REACTIONS (8)
  - Depressive symptom [Unknown]
  - Depressed mood [Recovered/Resolved]
  - Drug-disease interaction [Recovering/Resolving]
  - Drug interaction [Unknown]
  - Drug ineffective [Recovering/Resolving]
  - Body temperature increased [Recovered/Resolved]
  - Hyperhidrosis [Unknown]
  - Agitation [Unknown]

NARRATIVE: CASE EVENT DATE: 20170101
